FAERS Safety Report 4432871-7 (Version None)
Quarter: 2004Q3

REPORT INFORMATION
  Report Type: 
  Country: None (occurrence: None)
  Receive Date: 20040823
  Receipt Date: 20040809
  Transmission Date: 20050211
  Serious: Yes (Death)
  Sender: FDA-Public Use
  Company Number: CERZ-10632

PATIENT
  Age: 20 Year
  Sex: Male
  Weight: 53 kg

DRUGS (1)
  1. CEREZYME [Suspect]
     Indication: GAUCHER'S DISEASE
     Dosage: 45 U/KG IV
     Route: 042
     Dates: start: 19960101, end: 20040401

REACTIONS (2)
  - DISEASE PROGRESSION [None]
  - GAUCHER'S DISEASE [None]
